FAERS Safety Report 5975267-9 (Version None)
Quarter: 2008Q4

REPORT INFORMATION
  Report Type: 
  Country: None (occurrence: None)
  Receive Date: 20081202
  Receipt Date: 20081124
  Transmission Date: 20090506
  Serious: Yes (Hospitalization, Other)
  Sender: FDA-Public Use
  Company Number: DE-BAYER-200817774GPV

PATIENT
  Age: 0 Hour
  Sex: Male

DRUGS (1)
  1. MIRENA [Suspect]
     Route: 064
     Dates: start: 20070601, end: 20080119

REACTIONS (6)
  - APGAR SCORE LOW [None]
  - BLOOD PH DECREASED [None]
  - MECHANICAL VENTILATION [None]
  - NEONATAL ASPHYXIA [None]
  - PREMATURE BABY [None]
  - SMALL FOR DATES BABY [None]
